FAERS Safety Report 8457312 (Version 4)
Quarter: 2012Q4

REPORT INFORMATION
  Report Type: 
  Country: FR (occurrence: FR)
  Receive Date: 20120314
  Receipt Date: 20121010
  Transmission Date: 20130627
  Serious: Yes (Hospitalization)
  Sender: FDA-Public Use
  Company Number: FR-SP-2012-02743

PATIENT
  Age: 68 Year
  Sex: Male

DRUGS (1)
  1. IMMUCYST [Suspect]
     Indication: BLADDER CANCER
     Route: 043
     Dates: start: 20110517, end: 20120124

REACTIONS (6)
  - Bovine tuberculosis [Recovering/Resolving]
  - Heat rash [Recovered/Resolved]
  - Pyrexia [Recovered/Resolved]
  - Hepatitis [Recovering/Resolving]
  - Chills [Recovered/Resolved]
  - Retinal disorder [Recovering/Resolving]
